FAERS Safety Report 6643831-X (Version None)
Quarter: 2010Q1

REPORT INFORMATION
  Report Type: 
  Country: None (occurrence: None)
  Receive Date: 20100322
  Receipt Date: 20100315
  Transmission Date: 20100710
  Serious: Yes (Life-Threatening)
  Sender: FDA-Public Use
  Company Number: JP-JNJFOC-20100304448

PATIENT
  Sex: Male

DRUGS (14)
  1. CRAVIT [Suspect]
     Indication: BRONCHOPNEUMONIA
     Route: 048
  2. AMARYL [Suspect]
     Indication: DIABETES MELLITUS
     Route: 065
  3. VOGLIBOSE [Concomitant]
     Indication: DIABETES MELLITUS
     Route: 065
  4. LASIX [Concomitant]
     Route: 065
  5. FAMOTIDINE [Concomitant]
     Route: 065
  6. OLMESARTAN MEDOXOMIL [Concomitant]
     Route: 065
  7. URINORM [Concomitant]
     Route: 065
  8. ITOROL [Concomitant]
     Route: 065
  9. LIPITOR [Concomitant]
     Route: 065
  10. KINEDAK [Concomitant]
     Route: 065
  11. WARFARIN SODIUM [Concomitant]
     Route: 065
  12. GLYSENNID [Concomitant]
     Route: 065
  13. MARZULENE-S [Concomitant]
     Route: 065
  14. AMOBAN [Concomitant]
     Route: 065

REACTIONS (2)
  - DRUG PRESCRIBING ERROR [None]
  - HYPOGLYCAEMIA [None]
